FAERS Safety Report 11417468 (Version 1)
Quarter: 2015Q3

REPORT INFORMATION
  Report Type: Spontaneous
  Country: US (occurrence: US)
  Receive Date: 20150825
  Receipt Date: 20150825
  Transmission Date: 20151125
  Serious: No
  Sender: FDA-Public Use
  Company Number: US-TARO-2015TAR00204

PATIENT
  Sex: Male

DRUGS (20)
  1. KETOCONAZOLE CREAM 2% [Suspect]
     Active Substance: KETOCONAZOLE
     Indication: ERYTHEMA
  2. CLOBETASOL [Suspect]
     Active Substance: CLOBETASOL
     Indication: SKIN ULCER
  3. HYDROCORTISONE CREAM USP 2.5% [Suspect]
     Active Substance: HYDROCORTISONE
     Indication: ERYTHEMA
  4. HYDROCORTISONE CREAM USP 2.5% [Suspect]
     Active Substance: HYDROCORTISONE
     Indication: PRURITUS
  5. KETOCONAZOLE CREAM 2% [Suspect]
     Active Substance: KETOCONAZOLE
     Indication: SKIN DISORDER
  6. CLOBETASOL [Suspect]
     Active Substance: CLOBETASOL
     Indication: ERYTHEMA
  7. CLOBETASOL [Suspect]
     Active Substance: CLOBETASOL
     Indication: SKIN DISORDER
  8. TRIAMCINOLONE ACETONIDE OINTMENT USP 0.1% [Suspect]
     Active Substance: TRIAMCINOLONE ACETONIDE
     Indication: PAIN
     Route: 061
  9. TRIAMCINOLONE ACETONIDE OINTMENT USP 0.1% [Suspect]
     Active Substance: TRIAMCINOLONE ACETONIDE
     Indication: PRURITUS
  10. KETOCONAZOLE CREAM 2% [Suspect]
     Active Substance: KETOCONAZOLE
     Indication: PAIN
     Route: 061
  11. HYDROCORTISONE CREAM USP 2.5% [Suspect]
     Active Substance: HYDROCORTISONE
     Indication: PAIN
  12. HYDROCORTISONE CREAM USP 2.5% [Suspect]
     Active Substance: HYDROCORTISONE
     Indication: SKIN DISORDER
  13. TRIAMCINOLONE ACETONIDE OINTMENT USP 0.1% [Suspect]
     Active Substance: TRIAMCINOLONE ACETONIDE
     Indication: ERYTHEMA
  14. TRIAMCINOLONE ACETONIDE OINTMENT USP 0.1% [Suspect]
     Active Substance: TRIAMCINOLONE ACETONIDE
     Indication: SKIN DISORDER
  15. KETOCONAZOLE CREAM 2% [Suspect]
     Active Substance: KETOCONAZOLE
     Indication: PRURITUS
  16. CLOBETASOL [Suspect]
     Active Substance: CLOBETASOL
     Indication: PAIN
     Route: 061
  17. CLOBETASOL [Suspect]
     Active Substance: CLOBETASOL
     Indication: PRURITUS
  18. TRIAMCINOLONE ACETONIDE OINTMENT USP 0.1% [Suspect]
     Active Substance: TRIAMCINOLONE ACETONIDE
     Indication: SKIN ULCER
  19. KETOCONAZOLE CREAM 2% [Suspect]
     Active Substance: KETOCONAZOLE
     Indication: SKIN ULCER
  20. HYDROCORTISONE CREAM USP 2.5% [Suspect]
     Active Substance: HYDROCORTISONE
     Indication: SKIN ULCER

REACTIONS (1)
  - Drug ineffective [Not Recovered/Not Resolved]
